FAERS Safety Report 9257362 (Version 1)
Quarter: 2013Q1

REPORT INFORMATION
  Report Type: Spontaneous
  Country: US (occurrence: None)
  Receive Date: 20121212
  Receipt Date: 20121212
  Transmission Date: 20140127
  Serious: No
  Sender: FDA-Public Use
  Company Number: 1208USA002009

PATIENT
  Age: 48 Year
  Sex: Female
  Weight: 114.94 kg

DRUGS (5)
  1. VICTRELIS  (BOCEPREVIR) [Suspect]
     Indication: HEPATITIS C
     Dosage: 800MG, TID (EVERY 7 TO 9 HOURS), START ON WEEK 5,ORAL
     Route: 048
     Dates: start: 20120629
  2. REBETOL  (RIBAVIRIN) [Suspect]
     Indication: HEPATITIS C
     Dosage: DOSAGE WAS NOT LEGIBLE, ORAL
     Route: 048
     Dates: start: 20120629
  3. PEGASYS [Suspect]
     Indication: HEPATITIS C
     Dosage: 150MG, UNK, SUBCUTANEOUS
     Route: 058
     Dates: start: 20120629
  4. WELLBUTRIN (BUPROPION HYDROCHLORIDE) TABLET, 100MG [Concomitant]
  5. LEXAPRO (ESCITALOPRAM OXALATE) TABLET, 10MG [Concomitant]

REACTIONS (3)
  - Headache [None]
  - Diarrhoea [None]
  - Dysgeusia [None]
